FAERS Safety Report 9851734 (Version 2)
Quarter: 2014Q1

REPORT INFORMATION
  Report Type: Report from Study
  Country: BR (occurrence: BR)
  Receive Date: 20140129
  Receipt Date: 20140129
  Transmission Date: 20141002
  Serious: Yes (Hospitalization)
  Sender: FDA-Public Use
  Company Number: BR-ROCHE-1056674

PATIENT
  Sex: Male

DRUGS (2)
  1. ACTEMRA [Suspect]
     Indication: RHEUMATOID ARTHRITIS
     Dosage: DATE OF LAST INFUSION: 06/JAN/2014
     Route: 042
     Dates: start: 20100501
  2. PREDNISONE [Concomitant]
     Route: 065

REACTIONS (8)
  - Infection [Recovering/Resolving]
  - White blood cell count decreased [Recovering/Resolving]
  - Red blood cell count decreased [Recovering/Resolving]
  - Hepatomegaly [Recovering/Resolving]
  - Splenomegaly [Recovering/Resolving]
  - Gastrointestinal infection [Unknown]
  - Influenza [Recovered/Resolved]
  - Drug hypersensitivity [Recovered/Resolved]
